FAERS Safety Report 24606004 (Version 1)
Quarter: 2024Q4

REPORT INFORMATION
  Report Type: Spontaneous
  Country: US (occurrence: US)
  Receive Date: 20241111
  Receipt Date: 20241111
  Transmission Date: 20250114
  Serious: No
  Sender: ROCHE
  Company Number: US-ROCHE-3546266

PATIENT
  Age: 70 Year
  Sex: Female

DRUGS (6)
  1. CELLCEPT [Suspect]
     Active Substance: MYCOPHENOLATE MOFETIL
     Indication: Product used for unknown indication
     Route: 065
  2. OFEV [Concomitant]
     Active Substance: NINTEDANIB
     Indication: Idiopathic pulmonary fibrosis
     Route: 048
     Dates: start: 202111
  3. OFEV [Concomitant]
     Active Substance: NINTEDANIB
     Indication: Systemic sclerosis pulmonary
     Route: 048
  4. OFEV [Concomitant]
     Active Substance: NINTEDANIB
     Indication: Interstitial lung disease
     Route: 048
  5. TYVASO [Concomitant]
     Active Substance: TREPROSTINIL
     Indication: Pulmonary arterial hypertension
     Dosage: 1 IN 6 HOURS
     Route: 055
     Dates: start: 202303
  6. COVID 19 VACCINE (UNK INGREDIENTS) [Concomitant]
     Indication: Product used for unknown indication
     Route: 065

REACTIONS (12)
  - Alanine aminotransferase increased [Not Recovered/Not Resolved]
  - Aspartate aminotransferase increased [Not Recovered/Not Resolved]
  - Increased appetite [Not Recovered/Not Resolved]
  - Abdominal pain upper [Recovered/Resolved]
  - Abdominal discomfort [Not Recovered/Not Resolved]
  - Weight decreased [Not Recovered/Not Resolved]
  - Flatulence [Unknown]
  - Diarrhoea [Recovered/Resolved]
  - Alopecia [Not Recovered/Not Resolved]
  - Dyspepsia [Not Recovered/Not Resolved]
  - Cough [Not Recovered/Not Resolved]
  - Dyspnoea [Not Recovered/Not Resolved]
